FAERS Safety Report 7404235-5 (Version None)
Quarter: 2011Q2

REPORT INFORMATION
  Report Type: 
  Country: None (occurrence: None)
  Receive Date: 20110408
  Receipt Date: 20100315
  Transmission Date: 20111010
  Serious: Yes (Other)
  Sender: FDA-Public Use
  Company Number: PHHY2010DE91133

PATIENT
  Sex: Female

DRUGS (1)
  1. EXTAVIA [Suspect]
     Dosage: UNK
     Route: 058
     Dates: start: 20100204

REACTIONS (9)
  - CYSTITIS [None]
  - FUNGAL INFECTION [None]
  - DECREASED APPETITE [None]
  - URINARY RETENTION [None]
  - TEMPERATURE INTOLERANCE [None]
  - WEIGHT DECREASED [None]
  - INJECTION SITE PAIN [None]
  - EMOTIONAL DISTRESS [None]
  - INJECTION SITE INFECTION [None]
